FAERS Safety Report 4527886-4 (Version None)
Quarter: 2004Q4

REPORT INFORMATION
  Report Type: 
  Country: None (occurrence: None)
  Receive Date: 20041123
  Receipt Date: 20040329
  Transmission Date: 20050328
  Serious: Yes (Other)
  Sender: FDA-Public Use
  Company Number: HQWYE269630MAR04

PATIENT
  Sex: Female

DRUGS (1)
  1. ZOSYN [Suspect]
     Dosage: INTRAVENOUS
     Route: 042
     Dates: start: 20040101, end: 20040101

REACTIONS (1)
  - ANAPHYLACTIC REACTION [None]
